FAERS Safety Report 7498932-3 (Version None)
Quarter: 2011Q2

REPORT INFORMATION
  Report Type: 
  Country: None (occurrence: None)
  Receive Date: 20110524
  Receipt Date: 20110510
  Transmission Date: 20111010
  Serious: Yes (Death, Life-Threatening, Hospitalization)
  Sender: FDA-Public Use
  Company Number: DE-RANBAXY-2011RR-44598

PATIENT
  Age: 83 Year
  Sex: Male

DRUGS (9)
  1. FUROSEMIDE [Suspect]
     Dosage: 40 MG, UNK
     Route: 048
     Dates: end: 20060102
  2. KALINOR [Concomitant]
     Dosage: UNK
     Route: 048
     Dates: start: 20051214, end: 20060102
  3. PEROCUR [Concomitant]
     Dosage: 2 DF, UNK
     Route: 048
     Dates: start: 20051227, end: 20060102
  4. GLIANIMON [Concomitant]
     Dosage: 3 MG, UNK
     Route: 048
     Dates: start: 20041001, end: 20060102
  5. THEOPHYLLINE [Concomitant]
     Dosage: 375 MG, UNK
     Route: 048
     Dates: end: 20060102
  6. LISINOPRIL [Concomitant]
     Dosage: 10 MG, UNK
     Route: 048
     Dates: end: 20060102
  7. NOVALGIN [Concomitant]
     Dosage: 80 GTT, UNK
     Route: 048
     Dates: start: 20051228, end: 20060102
  8. NEXIUM [Concomitant]
     Dosage: 40 MG, UNK
     Route: 048
     Dates: end: 20060102
  9. FERRO SANOL [Concomitant]
     Dosage: 100 MG, UNK
     Route: 048
     Dates: start: 20051215, end: 20060102

REACTIONS (1)
  - DEATH [None]
